FAERS Safety Report 8136789-8 (Version None)
Quarter: 2012Q1

REPORT INFORMATION
  Report Type: 
  Country: None (occurrence: None)
  Receive Date: 20120214
  Receipt Date: 20120213
  Transmission Date: 20120608
  Serious: Yes (Hospitalization, Other)
  Sender: FDA-Public Use
  Company Number: US-PFIZER INC-2012010594

PATIENT
  Sex: Male

DRUGS (2)
  1. ZOLOFT [Suspect]
     Indication: DEPRESSION
     Dosage: UNK
  2. XANAX [Suspect]
     Indication: SLEEP DISORDER
     Dosage: 1 MG, AS NEEDED
     Route: 048

REACTIONS (3)
  - LOSS OF CONSCIOUSNESS [None]
  - LEUKAEMIA [None]
  - FALL [None]
